FAERS Safety Report 9221787 (Version 2)
Quarter: 2013Q2

REPORT INFORMATION
  Report Type: Spontaneous
  Country: AU (occurrence: AU)
  Receive Date: 20130410
  Receipt Date: 20130420
  Transmission Date: 20140414
  Serious: Yes (Hospitalization)
  Sender: FDA-Public Use
  Company Number: AU-US-EMD SERONO, INC.-7203306

PATIENT
  Age: 33 Year
  Sex: Female

DRUGS (3)
  1. CETROTIDE (CETRORELIX ACETATE FOR INJECTION) [Suspect]
     Indication: IN VITRO FERTILISATION
     Dates: start: 20130331, end: 2013
  2. MEGAFOL [Concomitant]
     Indication: PRODUCT USED FOR UNKNOWN INDICATION
  3. GONAL F [Concomitant]
     Indication: PRODUCT USED FOR UNKNOWN INDICATION
     Dates: start: 20130326, end: 20130401

REACTIONS (1)
  - Hypersensitivity [Recovered/Resolved]
